FAERS Safety Report 5699586 (Version 2)
Quarter: 2013Q1

REPORT INFORMATION
  Report Type: Spontaneous
  Country: US (occurrence: US)
  Receive Date: 20041214
  Receipt Date: 20130322
  Transmission Date: 20140127
  Serious: Yes (Other)
  Sender: FDA-Public Use
  Company Number: US-JNJFOC-20040600482

PATIENT
  Age: 61 Year
  Sex: Female

DRUGS (9)
  1. UNSPECIFIED IBUPROFEN PRODUCT [Suspect]
     Indication: PRODUCT USED FOR UNKNOWN INDICATION
     Route: 048
  2. METFORMIN [Interacting]
     Indication: TYPE 2 DIABETES MELLITUS
     Route: 048
  3. LISINOPRIL [Suspect]
     Indication: PRODUCT USED FOR UNKNOWN INDICATION
     Route: 048
  4. ASPIRIN [Concomitant]
  5. ATENOLOL [Concomitant]
  6. CLOPIDOGREL [Concomitant]
  7. AMLODIPINE [Concomitant]
  8. NATEGLINIDE [Concomitant]
  9. ORGANIC NITRATES [Concomitant]

REACTIONS (6)
  - Renal failure acute [Recovered/Resolved]
  - Drug interaction [Unknown]
  - Pancreatitis [Unknown]
  - Lactic acidosis [Recovered/Resolved]
  - Hypotension [Unknown]
  - Liver function test abnormal [Unknown]
